FAERS Safety Report 14755899 (Version 5)
Quarter: 2018Q4

REPORT INFORMATION
  Report Type: Spontaneous
  Country: US (occurrence: US)
  Receive Date: 20180413
  Receipt Date: 20181231
  Transmission Date: 20190204
  Serious: No
  Sender: FDA-Public Use
  Company Number: US-PFIZER INC-2018151177

PATIENT
  Age: 8 Year
  Sex: Male
  Weight: 23.9 kg

DRUGS (2)
  1. GENOTROPIN [Suspect]
     Active Substance: SOMATROPIN
     Indication: GROWTH HORMONE DEFICIENCY
     Dosage: 1.4 MG, UNK (X6 DAYS/WEEK)
     Route: 058
     Dates: start: 201711
  2. GENOTROPIN [Suspect]
     Active Substance: SOMATROPIN
     Indication: HYPOPITUITARISM
     Dosage: 1.2 MG, SIX DAYS A WEEK
     Route: 058
     Dates: start: 201707

REACTIONS (6)
  - Headache [Recovered/Resolved]
  - Weight decreased [Recovered/Resolved]
  - Product dose omission [Unknown]
  - Pyrexia [Recovered/Resolved]
  - Wrong technique in device usage process [Unknown]
  - Pharyngitis streptococcal [Recovered/Resolved]
